FAERS Safety Report 19493127 (Version 1)
Quarter: 2021Q3

REPORT INFORMATION
  Report Type: Spontaneous
  Country: DE (occurrence: DE)
  Receive Date: 20210705
  Receipt Date: 20210705
  Transmission Date: 20211014
  Serious: Yes (Death)
  Sender: FDA-Public Use
  Company Number: DE-TEVA-2021-DE-1928974

PATIENT
  Age: 54 Year
  Sex: Male

DRUGS (12)
  1. LEUCOVORIN. [Suspect]
     Active Substance: LEUCOVORIN
     Indication: ADENOCARCINOMA GASTRIC
     Route: 065
  2. RAMUCIRUMAB [Suspect]
     Active Substance: RAMUCIRUMAB
     Indication: ADENOCARCINOMA GASTRIC
     Route: 065
  3. RAMUCIRUMAB [Suspect]
     Active Substance: RAMUCIRUMAB
     Indication: MICROANGIOPATHIC HAEMOLYTIC ANAEMIA
  4. 5?FLUOROURACIL [Suspect]
     Active Substance: FLUOROURACIL
     Indication: MICROANGIOPATHIC HAEMOLYTIC ANAEMIA
  5. LEUCOVORIN. [Suspect]
     Active Substance: LEUCOVORIN
     Indication: MICROANGIOPATHIC HAEMOLYTIC ANAEMIA
  6. OXALIPLATIN. [Suspect]
     Active Substance: OXALIPLATIN
     Indication: ADENOCARCINOMA GASTRIC
     Route: 065
  7. IRINOTECAN [Suspect]
     Active Substance: IRINOTECAN
     Indication: MICROANGIOPATHIC HAEMOLYTIC ANAEMIA
  8. 5?FLUOROURACIL [Suspect]
     Active Substance: FLUOROURACIL
     Indication: ADENOCARCINOMA GASTRIC
     Route: 065
  9. OXALIPLATIN. [Suspect]
     Active Substance: OXALIPLATIN
     Indication: MICROANGIOPATHIC HAEMOLYTIC ANAEMIA
  10. IRINOTECAN [Suspect]
     Active Substance: IRINOTECAN
     Indication: ADENOCARCINOMA GASTRIC
     Route: 065
  11. DOCETAXEL. [Suspect]
     Active Substance: DOCETAXEL
     Indication: ADENOCARCINOMA GASTRIC
     Route: 065
  12. DOCETAXEL. [Suspect]
     Active Substance: DOCETAXEL
     Indication: MICROANGIOPATHIC HAEMOLYTIC ANAEMIA

REACTIONS (1)
  - Drug ineffective [Fatal]
